FAERS Safety Report 9654413 (Version 4)
Quarter: 2013Q4

REPORT INFORMATION
  Report Type: Report from Study
  Country: BR (occurrence: BR)
  Receive Date: 20131029
  Receipt Date: 20131211
  Transmission Date: 20140711
  Serious: Yes (Other)
  Sender: FDA-Public Use
  Company Number: PHHY2013BR102592

PATIENT
  Sex: Male
  Weight: 75 kg

DRUGS (2)
  1. EXELON PATCH [Suspect]
     Indication: DEMENTIA ALZHEIMER^S TYPE
     Dosage: 4.6 MG (PATCH 5 CM2), DAILY
     Route: 062
     Dates: start: 201303
  2. COMTAN [Concomitant]
     Dosage: UNK UKN, UNK

REACTIONS (8)
  - Dacryostenosis acquired [Recovering/Resolving]
  - Pain [Not Recovered/Not Resolved]
  - Eye pain [Recovered/Resolved]
  - Malaise [Unknown]
  - Memory impairment [Not Recovered/Not Resolved]
  - Application site hypersensitivity [Recovered/Resolved]
  - Application site mass [Recovered/Resolved]
  - Application site erythema [Recovered/Resolved]
